FAERS Safety Report 20856179 (Version 1)
Quarter: 2022Q2

REPORT INFORMATION
  Report Type: Spontaneous
  Country: PL (occurrence: PL)
  Receive Date: 20220520
  Receipt Date: 20220520
  Transmission Date: 20220721
  Serious: Yes (Other)
  Sender: FDA-Public Use
  Company Number: PL-JNJFOC-20220516337

PATIENT
  Age: 67 Year
  Sex: Female

DRUGS (3)
  1. DEXAMETHASONE [Suspect]
     Active Substance: DEXAMETHASONE
     Indication: Endometrial cancer
     Route: 065
     Dates: start: 2016
  2. CYCLOPHOSPHAMIDE [Suspect]
     Active Substance: CYCLOPHOSPHAMIDE
     Indication: Endometrial cancer
     Route: 065
     Dates: start: 2016
  3. VELCADE [Suspect]
     Active Substance: BORTEZOMIB
     Indication: Endometrial cancer
     Dosage: INJECTION
     Route: 065
     Dates: start: 2016

REACTIONS (4)
  - Deep vein thrombosis [Unknown]
  - Infection [Unknown]
  - Off label use [Unknown]
  - Product use in unapproved indication [Unknown]

NARRATIVE: CASE EVENT DATE: 20160101
